FAERS Safety Report 17453032 (Version 4)
Quarter: 2021Q3

REPORT INFORMATION
  Report Type: Report from Study
  Country: US (occurrence: US)
  Receive Date: 20200224
  Receipt Date: 20210703
  Transmission Date: 20211014
  Serious: No
  Sender: FDA-Public Use
  Company Number: NVSC2020US049677

PATIENT
  Age: 63 Year
  Sex: Female

DRUGS (2)
  1. GILENYA [Suspect]
     Active Substance: FINGOLIMOD HYDROCHLORIDE
     Indication: HYPERSENSITIVITY
     Dosage: 0.5 MG, QD
     Route: 048
     Dates: start: 20200609, end: 20210518
  2. GILENYA [Suspect]
     Active Substance: FINGOLIMOD HYDROCHLORIDE
     Indication: RELAPSING-REMITTING MULTIPLE SCLEROSIS

REACTIONS (10)
  - Urticaria [Recovered/Resolved]
  - Drug hypersensitivity [Unknown]
  - Abdominal pain [Unknown]
  - Arthralgia [Unknown]
  - Hypertension [Unknown]
  - Hypersensitivity [Unknown]
  - Blood pressure increased [Unknown]
  - Pruritus [Recovered/Resolved]
  - Product use in unapproved indication [Unknown]
  - Renal disorder [Unknown]

NARRATIVE: CASE EVENT DATE: 20210518
